FAERS Safety Report 6619486-7 (Version None)
Quarter: 2010Q1

REPORT INFORMATION
  Report Type: 
  Country: None (occurrence: None)
  Receive Date: 20100309
  Receipt Date: 20100222
  Transmission Date: 20100710
  Serious: Yes (Hospitalization)
  Sender: FDA-Public Use
  Company Number: DE-ELI_LILLY_AND_COMPANY-DE200903000836

PATIENT
  Sex: Female
  Weight: 85 kg

DRUGS (2)
  1. GEMCITABINE HCL [Suspect]
     Indication: NON-SMALL CELL LUNG CANCER
     Dosage: 1000 MG/M2 EVERY 3 WEEKS
     Route: 042
     Dates: start: 20090227
  2. CETUXIMAB [Suspect]
     Indication: NON-SMALL CELL LUNG CANCER
     Dosage: 400 MG/M2 EVERY 2 WEEKS.
     Route: 042
     Dates: start: 20090227

REACTIONS (3)
  - DEHYDRATION [None]
  - DIZZINESS [None]
  - HEADACHE [None]
